FAERS Safety Report 5571059-3 (Version None)
Quarter: 2007Q4

REPORT INFORMATION
  Report Type: 
  Country: None (occurrence: None)
  Receive Date: 20071221
  Receipt Date: 20071212
  Transmission Date: 20080405
  Serious: Yes (Death)
  Sender: FDA-Public Use
  Company Number: JP-ROCHE-534872

PATIENT
  Age: 57 Year
  Sex: Female
  Weight: 46 kg

DRUGS (53)
  1. PEGASYS [Suspect]
     Route: 058
     Dates: start: 20060821, end: 20070507
  2. PEGASYS [Suspect]
     Route: 058
     Dates: start: 20070507, end: 20070813
  3. CALONAL [Concomitant]
     Route: 048
     Dates: start: 20061002
  4. HYPADIL [Concomitant]
     Route: 031
     Dates: start: 20061109, end: 20061109
  5. HYPADIL [Concomitant]
     Route: 031
     Dates: start: 20070108
  6. AMLODIN [Concomitant]
     Route: 048
     Dates: start: 20061208, end: 20061208
  7. AMLODIN [Concomitant]
     Dosage: ON FRIDAY, SATURDAY, MONDAY, WEDNESDAY(4/WEEK) STOP DATE: 2007
     Route: 048
     Dates: start: 20070702
  8. AMLODIN [Concomitant]
     Route: 048
     Dates: start: 20071012
  9. ESPO [Concomitant]
     Route: 042
     Dates: start: 20060703, end: 20060827
  10. ESPO [Concomitant]
     Route: 042
     Dates: start: 20060828, end: 20060903
  11. ESPO [Concomitant]
     Route: 042
     Dates: start: 20060904, end: 20061001
  12. ESPO [Concomitant]
     Route: 042
     Dates: start: 20061002, end: 20061009
  13. ESPO [Concomitant]
     Route: 042
     Dates: start: 20061006, end: 20061012
  14. ESPO [Concomitant]
     Route: 042
     Dates: start: 20061013
  15. OXAROL INJECTION [Concomitant]
     Route: 042
     Dates: start: 20060703, end: 20061109
  16. OXAROL INJECTION [Concomitant]
     Route: 042
     Dates: start: 20061110, end: 20061116
  17. OXAROL INJECTION [Concomitant]
     Route: 042
     Dates: start: 20061117, end: 20061210
  18. OXAROL INJECTION [Concomitant]
     Route: 042
     Dates: start: 20061211, end: 20070208
  19. OXAROL INJECTION [Concomitant]
     Route: 042
     Dates: start: 20070209, end: 20070215
  20. OXAROL INJECTION [Concomitant]
     Route: 042
     Dates: start: 20070216, end: 20070315
  21. OXAROL INJECTION [Concomitant]
     Route: 042
     Dates: start: 20070316, end: 20070322
  22. OXAROL INJECTION [Concomitant]
     Route: 042
     Dates: start: 20070323, end: 20070821
  23. OXAROL INJECTION [Concomitant]
     Route: 042
     Dates: start: 20070822, end: 20070828
  24. OXAROL INJECTION [Concomitant]
     Route: 042
     Dates: start: 20070829, end: 20070925
  25. OXAROL INJECTION [Concomitant]
     Route: 042
     Dates: start: 20070926, end: 20071002
  26. OXAROL INJECTION [Concomitant]
     Route: 042
     Dates: start: 20071002
  27. SODIUM CHLORIDE [Concomitant]
     Dosage: AS NEEDED
     Route: 041
     Dates: start: 20060703
  28. 1 CONCOMITANT DRUG [Concomitant]
     Dosage: DRUG: SUBBLOOD-BS (ARTIFICIAL DIALYSATE)
     Route: 042
     Dates: start: 20060703
  29. 1 CONCOMITANT DRUG [Concomitant]
     Route: 042
     Dates: start: 20070122, end: 20070128
  30. 1 CONCOMITANT DRUG [Concomitant]
     Route: 042
     Dates: start: 20060129
  31. RISUMIC [Concomitant]
     Route: 048
     Dates: start: 20060703, end: 20070917
  32. EPADEL [Concomitant]
     Route: 048
     Dates: start: 20060603, end: 20061001
  33. EPADEL [Concomitant]
     Route: 048
     Dates: start: 20070316, end: 20070316
  34. DEPAS [Concomitant]
     Route: 048
     Dates: start: 20060703
  35. LAXOBERON [Concomitant]
     Route: 048
     Dates: start: 20060703
  36. HYALEIN [Concomitant]
     Dosage: 4*1 DROPS
     Route: 031
     Dates: start: 20060703
  37. PHOSBLOCK [Concomitant]
     Dosage: DIVIDED INTO 3 DOSES (2-4-4)
     Route: 048
     Dates: start: 20060703
  38. GLYSENNID [Concomitant]
     Route: 048
     Dates: start: 20060703
  39. MOBIC [Concomitant]
     Dosage: AS NEEDED
     Route: 048
     Dates: start: 20060703
  40. ULCERLMIN [Concomitant]
     Dosage: DOSEFORM: FINR GRANULE
     Route: 048
     Dates: start: 20060703
  41. NAUZELIN [Concomitant]
     Dosage: FORM: ORAL FORMULATION
     Route: 048
     Dates: start: 20060703, end: 20061208
  42. CAMLEED [Concomitant]
     Dosage: AS NEEDED (MOBIC IS TAKEN)
     Route: 048
     Dates: start: 20060703, end: 20061006
  43. CAMLEED [Concomitant]
     Dosage: AS NEEDED (CALONAL IS TAKEN)
     Route: 048
     Dates: start: 20061006, end: 20061006
  44. KETOPROFEN [Concomitant]
     Dosage: FORM: TAPE
     Route: 061
     Dates: start: 20060703
  45. HORIZON [Concomitant]
     Dosage: AS NEEDED
     Route: 048
     Dates: start: 20060703
  46. ALTAT [Concomitant]
     Route: 048
     Dates: start: 20060703, end: 20061208
  47. TANKARU [Concomitant]
     Route: 048
     Dates: start: 20060703, end: 20071012
  48. TANKARU [Concomitant]
     Route: 048
     Dates: start: 20071112, end: 20071112
  49. CARNACULIN [Concomitant]
     Route: 048
     Dates: start: 20060703
  50. CALSLOT [Concomitant]
     Route: 048
     Dates: start: 20060703, end: 20061208
  51. THYRADIN S [Concomitant]
     Route: 048
     Dates: start: 20070311
  52. DOGMATYL [Concomitant]
     Route: 048
     Dates: start: 20070311
  53. PRECIPITATED CALCIUM CARBONATE [Concomitant]
     Dosage: FORM: ORAL FORMULATION
     Route: 048
     Dates: start: 20071109

REACTIONS (1)
  - CEREBRAL HAEMORRHAGE [None]
